FAERS Safety Report 9144744 (Version 1)
Quarter: 2013Q1

REPORT INFORMATION
  Report Type: Spontaneous
  Country: US (occurrence: US)
  Receive Date: 20130306
  Receipt Date: 20130306
  Transmission Date: 20140127
  Serious: No
  Sender: FDA-Public Use
  Company Number: US-009507513-1303USA002407

PATIENT
  Age: 26 Year
  Sex: Female

DRUGS (2)
  1. AFRIN [Suspect]
     Indication: SEASONAL ALLERGY
     Dosage: 2 DF, QD
     Route: 045
  2. AFRIN [Suspect]
     Indication: NASAL CONGESTION

REACTIONS (2)
  - Oropharyngeal pain [Unknown]
  - Application site cold feeling [Unknown]
